FAERS Safety Report 4404310-3 (Version None)
Quarter: 2004Q3

REPORT INFORMATION
  Report Type: 
  Country: None (occurrence: None)
  Receive Date: 20040719
  Receipt Date: 20040707
  Transmission Date: 20050211
  Serious: Yes (Death)
  Sender: FDA-Public Use
  Company Number: JP-JNJFOC-20040701500

PATIENT
  Age: 65 Year
  Sex: Female
  Weight: 34.2 kg

DRUGS (2)
  1. REMICADE [Suspect]
     Indication: RHEUMATOID ARTHRITIS
     Dosage: 103 MG, INTRAVENOUS
     Route: 042
     Dates: start: 20040611
  2. RHEUMATREX [Concomitant]

REACTIONS (4)
  - GENERAL NUTRITION DISORDER [None]
  - PALLOR [None]
  - PYREXIA [None]
  - SHOCK HAEMORRHAGIC [None]
